FAERS Safety Report 5191451-9 (Version None)
Quarter: 2006Q4

REPORT INFORMATION
  Report Type: 
  Country: None (occurrence: None)
  Receive Date: 20061226
  Receipt Date: 20060111
  Transmission Date: 20070319
  Serious: Yes (Hospitalization)
  Sender: FDA-Public Use
  Company Number: FR-MERCK-0601USA01798

PATIENT
  Age: 87 Year
  Sex: Female

DRUGS (9)
  1. MODURETIC 5-50 [Suspect]
     Indication: ESSENTIAL HYPERTENSION
     Route: 048
     Dates: end: 20051216
  2. METHYLDOPA [Concomitant]
     Route: 048
     Dates: end: 20051220
  3. PROPOFAN (ASPIRIN (+) CAFFEINE (+) PROPOXYPHENE HYDROCHLORIDE) [Concomitant]
     Route: 065
     Dates: end: 20051204
  4. LORAZEPAM [Concomitant]
     Route: 065
     Dates: end: 20051220
  5. ALLOPURINOL [Concomitant]
     Route: 065
     Dates: end: 20051204
  6. TIMOPTIC [Concomitant]
     Route: 065
     Dates: end: 20051220
  7. PRAVASTATIN SODIUM [Concomitant]
     Route: 065
  8. ATARAX [Concomitant]
     Route: 065
  9. MIANSERIN HYDROCHLORIDE [Concomitant]
     Route: 065

REACTIONS (2)
  - THROMBOCYTOPENIA NEONATAL [None]
  - THROMBOCYTOPENIC PURPURA [None]
